FAERS Safety Report 9344937 (Version 1)
Quarter: 2013Q2

REPORT INFORMATION
  Report Type: Spontaneous
  Country: PT (occurrence: PT)
  Receive Date: 20130612
  Receipt Date: 20130612
  Transmission Date: 20140414
  Serious: Yes (Disabling, Other)
  Sender: FDA-Public Use
  Company Number: PT-BRISTOL-MYERS SQUIBB COMPANY-18999789

PATIENT
  Age: 9 Month
  Sex: Male

DRUGS (4)
  1. STOCRIN TABS [Suspect]
     Dosage: FILM-COATED TABS
     Route: 064
  2. ATAZANAVIR [Suspect]
  3. TRUVADA [Concomitant]
  4. ZIDOVUDINE [Concomitant]

REACTIONS (5)
  - Congenital hydrocephalus [Unknown]
  - Surgery [Unknown]
  - Premature baby [Unknown]
  - Abasia [Unknown]
  - Foetal exposure during pregnancy [Unknown]
